FAERS Safety Report 9509393 (Version 2)
Quarter: 2014Q1

REPORT INFORMATION
  Report Type: Spontaneous
  Country: US (occurrence: None)
  Receive Date: 20130305
  Receipt Date: 20140306
  Transmission Date: 20141002
  Serious: Yes (Other)
  Sender: FDA-Public Use
  Company Number: 163-21880-12071508

PATIENT
  Age: 70 Year
  Sex: Female
  Weight: 58.5 kg

DRUGS (2)
  1. REVLIMID [Suspect]
     Indication: PLASMA CELL MYELOMA
     Dosage: 18.75 MG, 21 IN 28 D, PO
     Route: 048
     Dates: start: 20120514
  2. ECOTRIN (ACETYLSALICYLIC ACID) [Concomitant]

REACTIONS (5)
  - Blood potassium decreased [None]
  - Rash [None]
  - Contusion [None]
  - Fatigue [None]
  - Rash [None]
